FAERS Safety Report 18330708 (Version 1)
Quarter: 2020Q3

REPORT INFORMATION
  Report Type: Spontaneous
  Country: US (occurrence: US)
  Receive Date: 20200930
  Receipt Date: 20200930
  Transmission Date: 20201103
  Serious: No
  Sender: FDA-Public Use
  Company Number: US-PFIZER INC-2020377284

PATIENT
  Age: 34 Year
  Sex: Female

DRUGS (1)
  1. IBRANCE [Suspect]
     Active Substance: PALBOCICLIB
     Dosage: 125 MG, CYCLIC (QD (ONCE A DAY) X 21 Q (EVERY) 28 DAYS)
     Dates: start: 20200806

REACTIONS (2)
  - Fatigue [Unknown]
  - Dizziness [Unknown]
